FAERS Safety Report 18517916 (Version 1)
Quarter: 2020Q4

REPORT INFORMATION
  Report Type: Report from Study
  Country: None (occurrence: BE)
  Receive Date: 20201118
  Receipt Date: 20201118
  Transmission Date: 20210114
  Serious: Yes (Death)
  Sender: FDA-Public Use
  Company Number: BE-ABBVIE-20K-013-3654448-00

PATIENT
  Age: 86 Year
  Sex: Male
  Weight: 57 kg

DRUGS (2)
  1. DUODOPA [Suspect]
     Active Substance: CARBIDOPA\LEVODOPA
     Indication: PARKINSON^S DISEASE
     Dosage: UNKNOWN DOSAGES
     Route: 050
     Dates: start: 20190211, end: 20200723
  2. DUODOPA [Suspect]
     Active Substance: CARBIDOPA\LEVODOPA
     Dosage: MD=4ML, CD=1.7ML/HR DURING 16HRS, ED=1.8ML
     Route: 050
     Dates: start: 20200723

REACTIONS (4)
  - Haemoglobin decreased [Fatal]
  - Sedation [Unknown]
  - Palliative care [Fatal]
  - Haemorrhage [Fatal]

NARRATIVE: CASE EVENT DATE: 20201115
